FAERS Safety Report 5331388-5 (Version None)
Quarter: 2007Q2

REPORT INFORMATION
  Report Type: 
  Country: None (occurrence: None)
  Receive Date: 20070522
  Receipt Date: 20070510
  Transmission Date: 20071010
  Serious: Yes (Hospitalization)
  Sender: FDA-Public Use
  Company Number: FR-GILEAD-2006-0010296

PATIENT
  Age: 41 Year
  Sex: Female

DRUGS (3)
  1. TRUVADA [Suspect]
     Route: 048
     Dates: start: 20060315, end: 20060907
  2. REYATAZ [Suspect]
     Route: 048
     Dates: start: 20060315, end: 20060907
  3. NORVIR [Suspect]
     Route: 048
     Dates: start: 20060315, end: 20060907

REACTIONS (4)
  - FACE OEDEMA [None]
  - LIPODYSTROPHY ACQUIRED [None]
  - LOCALISED OEDEMA [None]
  - WAIST CIRCUMFERENCE INCREASED [None]
